FAERS Safety Report 8276209-6 (Version None)
Quarter: 2012Q2

REPORT INFORMATION
  Report Type: 
  Country: None (occurrence: None)
  Receive Date: 20120409
  Receipt Date: 20120403
  Transmission Date: 20120825
  Serious: Yes (Hospitalization, Other)
  Sender: FDA-Public Use
  Company Number: 2009SP023526

PATIENT
  Age: 33 Year
  Sex: Female
  Weight: 88.905 kg

DRUGS (4)
  1. SINGULAIR [Concomitant]
  2. PROVENTIL [Concomitant]
  3. ALLEGRA-D 12 HOUR [Concomitant]
  4. NUVARING [Suspect]
     Indication: CONTRACEPTION
     Dates: start: 20051201, end: 20070901

REACTIONS (18)
  - NAUSEA [None]
  - CHEST PAIN [None]
  - OEDEMA PERIPHERAL [None]
  - MICROCYTIC ANAEMIA [None]
  - PULMONARY EMBOLISM [None]
  - SYNCOPE [None]
  - JOINT SWELLING [None]
  - TACHYCARDIA [None]
  - HYPERGLYCAEMIA [None]
  - PHLEBITIS SUPERFICIAL [None]
  - DIASTOLIC HYPERTENSION [None]
  - ERYTHEMA [None]
  - COR PULMONALE [None]
  - PALPITATIONS [None]
  - FACTOR V DEFICIENCY [None]
  - HYPOVOLAEMIA [None]
  - PAIN IN EXTREMITY [None]
  - DEHYDRATION [None]
